FAERS Safety Report 24613555 (Version 6)
Quarter: 2025Q1

REPORT INFORMATION
  Report Type: Spontaneous
  Country: GR (occurrence: GR)
  Receive Date: 20241113
  Receipt Date: 20250321
  Transmission Date: 20250409
  Serious: No
  Sender: PFIZER
  Company Number: GR-PFIZER INC-PV202400142244

PATIENT
  Age: 10 Year
  Sex: Male
  Weight: 22 kg

DRUGS (1)
  1. NGENLA [Suspect]
     Active Substance: SOMATROGON-GHLA
     Indication: Growth hormone deficiency
     Dosage: 4 MG, WEEKLY
     Route: 058
     Dates: start: 202410

REACTIONS (4)
  - Device use error [Unknown]
  - Device material issue [Unknown]
  - Poor quality device used [Unknown]
  - Incorrect dose administered [Unknown]

NARRATIVE: CASE EVENT DATE: 20241031
